FAERS Safety Report 20321691 (Version 1)
Quarter: 2022Q1

REPORT INFORMATION
  Report Type: Spontaneous
  Country: US (occurrence: None)
  Receive Date: 20220111
  Receipt Date: 20220111
  Transmission Date: 20220423
  Serious: Yes (Hospitalization)
  Sender: FDA-Public Use
  Company Number: None

PATIENT
  Age: 62 Year
  Sex: Female
  Weight: 59 kg

DRUGS (2)
  1. LOMUSTINE [Suspect]
     Active Substance: LOMUSTINE
     Dates: end: 20211209
  2. PROCARBAZINE [Suspect]
     Active Substance: PROCARBAZINE
     Dates: end: 20211229

REACTIONS (7)
  - Muscular weakness [None]
  - Fall [None]
  - Abdominal pain [None]
  - Musculoskeletal discomfort [None]
  - Musculoskeletal discomfort [None]
  - Pain [None]
  - Colitis [None]

NARRATIVE: CASE EVENT DATE: 20211230
